FAERS Safety Report 8401511 (Version 2)
Quarter: 2012Q4

REPORT INFORMATION
  Report Type: 
  Country: CA (occurrence: CA)
  Receive Date: 20120210
  Receipt Date: 20121130
  Transmission Date: 20130627
  Serious: Yes (Hospitalization)
  Sender: FDA-Public Use
  Company Number: PHHY2012CA010847

PATIENT
  Age: 83 Year
  Sex: Female

DRUGS (2)
  1. SANDOSTATIN LAR [Suspect]
     Indication: DIARRHOEA
     Dosage: 30 mg, once a month
     Route: 030
     Dates: start: 20061201
  2. SANDOSTATIN LAR [Suspect]
     Dosage: 20 mg, Once a month
     Route: 030
     Dates: end: 20121022

REACTIONS (1)
  - Hip fracture [Unknown]
